FAERS Safety Report 12186473 (Version 2)
Quarter: 2016Q2

REPORT INFORMATION
  Report Type: Report from Study
  Country: US (occurrence: US)
  Receive Date: 20160317
  Receipt Date: 20160421
  Transmission Date: 20160815
  Serious: No
  Sender: FDA-Public Use
  Company Number: US-AMGEN-USASL2016030183

PATIENT
  Age: 76 Year
  Sex: Female

DRUGS (2)
  1. METHOTREXATE [Concomitant]
     Active Substance: METHOTREXATE
     Dosage: UNK
  2. ENBREL [Suspect]
     Active Substance: ETANERCEPT
     Indication: RHEUMATOID ARTHRITIS
     Dosage: 50 MG, QWK
     Route: 065
     Dates: start: 20160201, end: 201603

REACTIONS (14)
  - Rash [Unknown]
  - Hypersensitivity [Unknown]
  - Swelling [Unknown]
  - Acne [Unknown]
  - Heart rate increased [Unknown]
  - Injection site haemorrhage [Unknown]
  - Erythema [Unknown]
  - Injection site bruising [Unknown]
  - Pain [Not Recovered/Not Resolved]
  - Sciatica [Unknown]
  - Urticaria [Unknown]
  - Pain in extremity [Unknown]
  - Peripheral swelling [Unknown]
  - Wrong technique in product usage process [Unknown]

NARRATIVE: CASE EVENT DATE: 2016
